FAERS Safety Report 4837317-2 (Version None)
Quarter: 2005Q4

REPORT INFORMATION
  Report Type: 
  Country: None (occurrence: None)
  Receive Date: 20051122
  Receipt Date: 20051108
  Transmission Date: 20060501
  Serious: Yes (Hospitalization)
  Sender: FDA-Public Use
  Company Number: 2005P1000522

PATIENT
  Age: 20 Year
  Sex: Male

DRUGS (3)
  1. BUSULFAN (BUSULFAN) [Suspect]
     Indication: STEM CELL TRANSPLANT
     Dosage: 60 MG QD; IV
     Route: 042
     Dates: start: 20050531, end: 20050603
  2. CYCLOPHOSPHAMIDE [Suspect]
     Indication: STEM CELL TRANSPLANT
     Dosage: 4500 GM QD; IV
     Route: 042
     Dates: start: 20050605, end: 20050723
  3. FLUDARABINE PHOSPHATE [Suspect]
     Indication: STEM CELL TRANSPLANT
     Dosage: 50 MG QD; IV
     Route: 042
     Dates: start: 20050602, end: 20050723

REACTIONS (3)
  - ACUTE PULMONARY OEDEMA [None]
  - CARDIOMEGALY [None]
  - CARDIOMYOPATHY [None]
